FAERS Safety Report 10064100 (Version 2)
Quarter: 2014Q1

REPORT INFORMATION
  Report Type: Spontaneous
  Country: US (occurrence: None)
  Receive Date: 20140109
  Receipt Date: 20140130
  Transmission Date: 20141002
  Serious: Yes (Hospitalization)
  Sender: FDA-Public Use
  Company Number: 140005

PATIENT
  Age: 51 Year
  Sex: Male
  Weight: 77.11 kg

DRUGS (1)
  1. SUPREP BOWEL PREP KIT [Suspect]
     Indication: COLONOSCOPY
     Dosage: 2  X 6 OZ. BOTTLE  1X PO
     Route: 048
     Dates: start: 20131219, end: 20131219

REACTIONS (8)
  - Convulsion [None]
  - Hyperhidrosis [None]
  - Loss of consciousness [None]
  - Dehydration [None]
  - Myalgia [None]
  - Pain in extremity [None]
  - Blood pressure decreased [None]
  - Presyncope [None]
